FAERS Safety Report 6786410-6 (Version None)
Quarter: 2010Q2

REPORT INFORMATION
  Report Type: 
  Country: None (occurrence: None)
  Receive Date: 20100623
  Receipt Date: 20100615
  Transmission Date: 20101027
  Serious: Yes (Death)
  Sender: FDA-Public Use
  Company Number: A0850357A

PATIENT
  Age: 80 Year
  Sex: Male
  Weight: 91.8 kg

DRUGS (3)
  1. TYKERB [Suspect]
     Indication: DRUG USE FOR UNKNOWN INDICATION
     Route: 048
     Dates: start: 20090707, end: 20100227
  2. SOTALOL [Concomitant]
     Dosage: 80MG TWICE PER DAY
     Route: 048
  3. COZAAR [Concomitant]
     Dosage: 100MG PER DAY
     Route: 048

REACTIONS (1)
  - CARDIOPULMONARY FAILURE [None]
